FAERS Safety Report 8798815 (Version 1)
Quarter: 2012Q4

REPORT INFORMATION
  Report Type: Spontaneous
  Country: US (occurrence: None)
  Receive Date: 20120917
  Receipt Date: 20120917
  Transmission Date: 20130627
  Serious: Yes (Death)
  Sender: FDA-Public Use
  Company Number: None

PATIENT
  Age: 74 Year
  Sex: Female

DRUGS (2)
  1. FENTANYL TRANSDEMAL SYSTEM [Suspect]
     Dates: start: 20110202, end: 20110312
  2. UNSPECIFIED [Suspect]

REACTIONS (6)
  - Agitation [None]
  - Dyspnoea [None]
  - Abdominal pain upper [None]
  - Vision blurred [None]
  - Tremor [None]
  - Abdominal distension [None]
